FAERS Safety Report 9624661 (Version 1)
Quarter: 2013Q4

REPORT INFORMATION
  Report Type: Spontaneous
  Country: KP (occurrence: None)
  Receive Date: 20131010
  Receipt Date: 20131010
  Transmission Date: 20140711
  Serious: Yes (Death)
  Sender: FDA-Public Use
  Company Number: 1933581

PATIENT
  Age: 59 Year
  Sex: Male
  Weight: 53 kg

DRUGS (19)
  1. DEXMEDETOMIDINE HYDROCHLORIDE [Suspect]
  2. PULMICORT [Concomitant]
  3. ATROVENT UDV [Concomitant]
  4. MUCOMYST [Concomitant]
  5. VENTOLIN [Concomitant]
  6. CRAVIT [Concomitant]
  7. ANTACID [Concomitant]
  8. MIDAZOLAM [Concomitant]
  9. ESMERON [Concomitant]
  10. DEXMEDETOMIDINE HYDROCHLORIDE [Suspect]
  11. TAZOCIN [Concomitant]
  12. HEPARIN [Concomitant]
  13. LASIZ [Concomitant]
  14. VANCOCIN [Concomitant]
  15. MEROPEN [Concomitant]
  16. CORTISOLU [Concomitant]
  17. VASOCONSTRICTOR [Concomitant]
  18. NIMBEX [Concomitant]
  19. VASOPRESSIN [Concomitant]

REACTIONS (4)
  - Pneumonia [None]
  - Septic shock [None]
  - Metabolic acidosis [None]
  - Respiratory depression [None]
